FAERS Safety Report 16900581 (Version 1)
Quarter: 2019Q4

REPORT INFORMATION
  Report Type: Report from Study
  Country: US (occurrence: US)
  Receive Date: 20191009
  Receipt Date: 20191009
  Transmission Date: 20200122
  Serious: Yes (Other)
  Sender: FDA-Public Use
  Company Number: US-TEVA-2019-US-1118795

PATIENT

DRUGS (2)
  1. CISPLATIN. [Suspect]
     Active Substance: CISPLATIN
     Indication: SOFT TISSUE SARCOMA
     Dosage: 6 MG/M2 DAILY; RECEIVED OVER 3-5 MINUTES GIVEN 20 TO 30 MINUTES PRIOR TO RADIATION (5 DAYS) FOR 6 WE
     Route: 042
  2. ADRIAMYCIN [Suspect]
     Active Substance: DOXORUBICIN HYDROCHLORIDE
     Indication: SOFT TISSUE SARCOMA
     Dosage: 12.5 MG/M2 DAILY; RECEIVED OVER 24 HOURS ON DAYS 1-4, WEEKS 1 AND 4.
     Route: 041

REACTIONS (1)
  - Haematotoxicity [Unknown]
